FAERS Safety Report 7927494-9 (Version None)
Quarter: 2011Q4

REPORT INFORMATION
  Report Type: 
  Country: None (occurrence: None)
  Receive Date: 20111118
  Receipt Date: 20111114
  Transmission Date: 20120403
  Serious: Yes (Hospitalization)
  Sender: FDA-Public Use
  Company Number: DE-AMGEN-DEUNI2011052873

PATIENT
  Age: 51 Year
  Sex: Male
  Weight: 71 kg

DRUGS (9)
  1. PEGASYS [Concomitant]
     Indication: HEPATITIS C
     Dosage: 180 UG, WEEKLY
     Route: 058
     Dates: start: 20101001
  2. PEGASYS [Concomitant]
     Indication: HEPATITIS C
     Dosage: 180 UG, WEEKLY
     Route: 058
     Dates: start: 20101001
  3. ETANERCEPT [Suspect]
     Indication: ANKYLOSING SPONDYLITIS
     Dosage: 50 MG, QWK
     Dates: start: 20100721, end: 20110306
  4. PEGINTRON                          /01543001/ [Concomitant]
     Indication: HEPATITIS C
     Dosage: 180 UG, UNK
     Dates: start: 20101012
  5. ETANERCEPT [Suspect]
     Dosage: 50 MG, QWK
     Dates: start: 20110913
  6. RIBAVIRIN [Concomitant]
     Indication: HEPATITIS C
     Dosage: 200 MG, 4X/DAY
     Dates: end: 20101001
  7. CALCIVIT D [Concomitant]
     Indication: OSTEOPOROTIC FRACTURE
     Dosage: UNK
  8. ACTONEL [Concomitant]
     Indication: OSTEOPOROTIC FRACTURE
     Dosage: 35 MG, UNK
  9. DIPIDOLOR [Concomitant]
     Indication: ANKYLOSING SPONDYLITIS
     Dosage: UNK
     Route: 058
     Dates: start: 20110301

REACTIONS (12)
  - WHITE BLOOD CELL COUNT DECREASED [None]
  - ERYTHEMA [None]
  - IMPAIRED HEALING [None]
  - ALANINE AMINOTRANSFERASE INCREASED [None]
  - LYMPH GLAND INFECTION [None]
  - PAIN [None]
  - BONE MARROW DISORDER [None]
  - HAEMOGLOBIN DECREASED [None]
  - SEROMA [None]
  - KNEE OPERATION [None]
  - SWELLING [None]
  - GAMMA-GLUTAMYLTRANSFERASE INCREASED [None]
